FAERS Safety Report 14530293 (Version 1)
Quarter: 2018Q1

REPORT INFORMATION
  Report Type: Report from Study
  Country: US (occurrence: BR)
  Receive Date: 20180214
  Receipt Date: 20180214
  Transmission Date: 20180509
  Serious: Yes (Hospitalization, Other)
  Sender: FDA-Public Use
  Company Number: US-SUNOVION-2018SUN000523

PATIENT
  Sex: Male

DRUGS (2)
  1. ALENIA [Concomitant]
     Active Substance: BUDESONIDE\FORMOTEROL FUMARATE
  2. INDACATEROL AND GLYCOPYRROLATE [Suspect]
     Active Substance: GLYCOPYRROLATE\INDACATEROL MALEATE
     Indication: CHRONIC OBSTRUCTIVE PULMONARY DISEASE
     Dosage: 1 DF (INDACATEROL 110 UG/GLYCOPYRRONIUM BROMIDE 50 UG), QD
     Route: 065
     Dates: start: 20170901

REACTIONS (5)
  - Infarction [Unknown]
  - Weight decreased [Recovering/Resolving]
  - Wound [Recovering/Resolving]
  - Gait inability [Not Recovered/Not Resolved]
  - Neuropathic muscular atrophy [Unknown]
